FAERS Safety Report 16779218 (Version 3)
Quarter: 2020Q2

REPORT INFORMATION
  Report Type: Report from Study
  Country: JP (occurrence: JP)
  Receive Date: 20190906
  Receipt Date: 20200428
  Transmission Date: 20200713
  Serious: Yes (Other)
  Sender: FDA-Public Use
  Company Number: JP-GLAXOSMITHKLINE-JP2019JPN159428

PATIENT
  Age: 3 Decade
  Sex: Female
  Weight: 52 kg

DRUGS (25)
  1. CELLCEPT [Suspect]
     Active Substance: MYCOPHENOLATE MOFETIL\MYCOPHENOLATE MOFETIL HYDROCHLORIDE
     Indication: SYSTEMIC LUPUS ERYTHEMATOSUS
     Dosage: 2000 MG, 1D
     Route: 048
  2. PREDONINE [Suspect]
     Active Substance: PREDNISOLONE
     Dosage: 40 MG, 1D
     Route: 048
     Dates: start: 20180629, end: 20180713
  3. PROGRAF [Suspect]
     Active Substance: TACROLIMUS
     Indication: SYSTEMIC LUPUS ERYTHEMATOSUS
     Dosage: UNK
     Route: 048
  4. EDIROL [Suspect]
     Active Substance: ELDECALCITOL
     Indication: OSTEOPOROSIS
     Dosage: UNK
     Route: 048
     Dates: end: 20190117
  5. ALFACALCIDOL [Concomitant]
     Active Substance: ALFACALCIDOL
     Dosage: UNK
     Dates: start: 20190118
  6. PREDONINE [Suspect]
     Active Substance: PREDNISOLONE
     Dosage: 13.5 MG, 1D
     Route: 048
     Dates: start: 20181106, end: 20181213
  7. PREDONINE [Suspect]
     Active Substance: PREDNISOLONE
     Dosage: 12.5 MG, 1D
     Route: 048
     Dates: start: 20181214, end: 20190107
  8. BELIMUMAB [Suspect]
     Active Substance: BELIMUMAB
     Indication: SYSTEMIC LUPUS ERYTHEMATOSUS
     Dosage: 10 MG/KG, EVERY 4 WEEKS
     Route: 041
     Dates: start: 20180622, end: 20181214
  9. BELIMUMAB [Suspect]
     Active Substance: BELIMUMAB
     Dosage: 10 MG/KG, EVERY 4 WEEKS
     Route: 041
     Dates: start: 20181214, end: 20190607
  10. PREDONINE [Suspect]
     Active Substance: PREDNISOLONE
     Dosage: 20 MG, 1D
     Route: 048
     Dates: start: 20180804, end: 20180824
  11. PREDONINE [Suspect]
     Active Substance: PREDNISOLONE
     Dosage: 17.5 MG, 1D
     Route: 048
     Dates: start: 20180825, end: 20180907
  12. PREDONINE [Suspect]
     Active Substance: PREDNISOLONE
     Dosage: 15 MG, 1D
     Route: 048
     Dates: start: 20181012, end: 20181105
  13. ACTONEL [Concomitant]
     Active Substance: RISEDRONATE SODIUM
     Dosage: UNK
  14. PREDONINE [Suspect]
     Active Substance: PREDNISOLONE
     Indication: SYSTEMIC LUPUS ERYTHEMATOSUS
     Dosage: 50 MG, 1D
     Route: 048
     Dates: start: 20180519, end: 20180628
  15. PREDONINE [Suspect]
     Active Substance: PREDNISOLONE
     Dosage: 30 MG, 1D
     Route: 048
     Dates: start: 20180714, end: 20180720
  16. PREDONINE [Suspect]
     Active Substance: PREDNISOLONE
     Dosage: 25 MG, 1D
     Route: 048
     Dates: start: 20180721, end: 20180803
  17. URSO [Concomitant]
     Active Substance: URSODIOL
     Dosage: UNK
  18. RABEPRAZOLE SODIUM. [Concomitant]
     Active Substance: RABEPRAZOLE SODIUM
     Indication: PROPHYLAXIS AGAINST GASTROINTESTINAL ULCER
     Dosage: UNK
  19. PREDONINE [Suspect]
     Active Substance: PREDNISOLONE
     Dosage: 16 MG, 1D
     Route: 048
     Dates: start: 20180908, end: 20181011
  20. PLAQUENIL [Concomitant]
     Active Substance: HYDROXYCHLOROQUINE SULFATE
     Indication: SYSTEMIC LUPUS ERYTHEMATOSUS
     Dosage: UNK
  21. AMPHOTERICIN B. [Concomitant]
     Active Substance: AMPHOTERICIN B
     Indication: PROPHYLAXIS
     Dosage: UNK
  22. GLUFAST [Concomitant]
     Active Substance: MITIGLINIDE
     Dosage: UNK
  23. PREDONINE [Suspect]
     Active Substance: PREDNISOLONE
     Dosage: 12 MG, 1D
     Route: 048
     Dates: start: 20190118
  24. DAIPHEN [Concomitant]
     Active Substance: SULFAMETHOXAZOLE\TRIMETHOPRIM
     Indication: PROPHYLAXIS
     Dosage: UNK
  25. ARTIST [Concomitant]
     Active Substance: CARVEDILOL
     Dosage: UNK

REACTIONS (5)
  - Cytomegalovirus infection [Recovered/Resolved]
  - Urinary tract infection [Recovered/Resolved]
  - Renal impairment [Recovered/Resolved]
  - Sinusitis [Recovered/Resolved]
  - Upper respiratory tract infection [Recovered/Resolved]

NARRATIVE: CASE EVENT DATE: 20180704
